FAERS Safety Report 9978461 (Version 1)
Quarter: 2014Q1

REPORT INFORMATION
  Report Type: Report from Study
  Country: US (occurrence: US)
  Receive Date: 20140306
  Receipt Date: 20140306
  Transmission Date: 20141002
  Serious: No
  Sender: FDA-Public Use
  Company Number: US-ABBVIE-13P-163-1173153-00

PATIENT
  Age: 35 Year
  Sex: Female

DRUGS (18)
  1. HUMIRA [Suspect]
     Indication: CROHN^S DISEASE
     Dates: start: 20130606, end: 20130606
  2. HUMIRA [Suspect]
     Dates: start: 20130620, end: 20130620
  3. HUMIRA [Suspect]
     Dates: start: 2013, end: 201308
  4. LEVOTHYROXINE [Concomitant]
     Indication: PRODUCT USED FOR UNKNOWN INDICATION
  5. AMBIEN [Concomitant]
     Indication: INSOMNIA
  6. ATIVAN [Concomitant]
     Indication: MIGRAINE
  7. CODEINE [Concomitant]
     Indication: PAIN
  8. MORPHINE [Concomitant]
     Indication: PAIN
  9. COMPAZINE [Concomitant]
     Indication: MIGRAINE
  10. DYAZIDE [Concomitant]
     Indication: OEDEMA
  11. DYAZIDE [Concomitant]
     Indication: HYPERTENSION
  12. FLEXERIL [Concomitant]
     Indication: CROHN^S DISEASE
  13. HYDROCORTISONE [Concomitant]
     Indication: CROHN^S DISEASE
  14. IMURAN [Concomitant]
     Indication: CROHN^S DISEASE
  15. PLAVIX [Concomitant]
     Indication: CEREBROVASCULAR ACCIDENT
  16. NOVOLOG [Concomitant]
     Indication: DIABETES MELLITUS
  17. TOPAMAX [Concomitant]
     Indication: MIGRAINE
  18. ZANTAC [Concomitant]
     Indication: CROHN^S DISEASE

REACTIONS (5)
  - Wound drainage [Recovering/Resolving]
  - Wound complication [Not Recovered/Not Resolved]
  - Wound [Recovering/Resolving]
  - Rash [Not Recovered/Not Resolved]
  - Drug ineffective [Unknown]
